FAERS Safety Report 18766385 (Version 4)
Quarter: 2021Q3

REPORT INFORMATION
  Report Type: Other
  Country: CA (occurrence: CA)
  Receive Date: 20210121
  Receipt Date: 20210728
  Transmission Date: 20211014
  Serious: Yes (Other)
  Sender: FDA-Public Use
  Company Number: CA-ROCHE-2748574

PATIENT
  Age: 52 Year
  Sex: Female

DRUGS (6)
  1. CIPRO [Concomitant]
     Active Substance: CIPROFLOXACIN HYDROCHLORIDE
  2. PREGABALIN. [Concomitant]
     Active Substance: PREGABALIN
  3. OCREVUS [Suspect]
     Active Substance: OCRELIZUMAB
     Indication: PRIMARY PROGRESSIVE MULTIPLE SCLEROSIS
     Dosage: 300 MG AT DAY 0 AND 14, THEN 600 MG EVERY 6 MONTH,
     Route: 042
     Dates: start: 20190912
  4. OCREVUS [Suspect]
     Active Substance: OCRELIZUMAB
     Dosage: 600 MG EVERY 6 MONTH, CONCENTRATE FOR INTRAVENOUS INFUSION
     Route: 042
  5. APO SULFATRIM [Suspect]
     Active Substance: SULFAMETHOXAZOLE\TRIMETHOPRIM
     Indication: PRODUCT USED FOR UNKNOWN INDICATION
     Route: 065
  6. CIPROFLOXACINE [Concomitant]
     Active Substance: CIPROFLOXACIN

REACTIONS (5)
  - Peripheral coldness [Recovered/Resolved]
  - Urine abnormality [Recovered/Resolved]
  - Back pain [Not Recovered/Not Resolved]
  - Skin plaque [Recovered/Resolved]
  - Kidney infection [Recovered/Resolved]

NARRATIVE: CASE EVENT DATE: 20201221
